FAERS Safety Report 4473096-9 (Version None)
Quarter: 2004Q4

REPORT INFORMATION
  Report Type: 
  Country: None (occurrence: None)
  Receive Date: 20041013
  Receipt Date: 20040913
  Transmission Date: 20050328
  Serious: Yes (Other)
  Sender: FDA-Public Use
  Company Number: PHFR2004GB03500

PATIENT
  Age: 12 Year
  Sex: Male

DRUGS (3)
  1. RITALIN [Suspect]
     Indication: ATTENTION DEFICIT/HYPERACTIVITY DISORDER
     Dosage: 10 MG, QID
     Route: 048
     Dates: start: 19970101, end: 20040514
  2. RITALIN [Suspect]
     Dosage: 36 MG, QD
  3. ATOMOXETINE [Concomitant]
     Indication: ATTENTION DEFICIT/HYPERACTIVITY DISORDER
     Dosage: 10 - 40MG QD
     Route: 048
     Dates: start: 20040519, end: 20040701

REACTIONS (2)
  - INSOMNIA [None]
  - NEUTROPENIA [None]
